FAERS Safety Report 5010908-4 (Version None)
Quarter: 2006Q2

REPORT INFORMATION
  Report Type: 
  Country: None (occurrence: None)
  Receive Date: 20060523
  Receipt Date: 20060511
  Transmission Date: 20061013
  Serious: Yes (Other)
  Sender: FDA-Public Use
  Company Number: 222334

PATIENT
  Age: 53 Year
  Sex: Male
  Weight: 52.2 kg

DRUGS (5)
  1. RAPTIVA [Suspect]
     Indication: PSORIASIS
     Dosage: 1.5 MG 1/WEEK SUBCUTANEOUS
     Route: 058
     Dates: start: 20050809, end: 20060419
  2. ZITHROMAX [Concomitant]
  3. MINOCYCLINE HCL [Concomitant]
  4. KENALOG (TRIMCINOLONE ACETONIDE) [Concomitant]
  5. CIPRO [Concomitant]

REACTIONS (6)
  - ANOREXIA [None]
  - DYSPNOEA [None]
  - GROIN INFECTION [None]
  - INFECTION [None]
  - NAUSEA [None]
  - WEIGHT DECREASED [None]
